FAERS Safety Report 12159482 (Version 1)
Quarter: 2016Q1

REPORT INFORMATION
  Report Type: Spontaneous
  Country: US (occurrence: None)
  Receive Date: 20160307
  Receipt Date: 20160307
  Transmission Date: 20160526
  Serious: Yes (Hospitalization)
  Sender: FDA-Public Use
  Company Number: None

PATIENT
  Age: 91 Year
  Sex: Male
  Weight: 92 kg

DRUGS (14)
  1. ASPIRIN 81 MG [Concomitant]
     Active Substance: ASPIRIN
  2. ALLOPURINOL. [Concomitant]
     Active Substance: ALLOPURINOL
  3. CYANOCOBALAMIN. [Concomitant]
     Active Substance: CYANOCOBALAMIN
  4. DONEPEZIL. [Concomitant]
     Active Substance: DONEPEZIL
  5. FOLIC ACID. [Concomitant]
     Active Substance: FOLIC ACID
  6. PRIMIDONE. [Concomitant]
     Active Substance: PRIMIDONE
  7. METOPROLOL TARTRATE. [Concomitant]
     Active Substance: METOPROLOL TARTRATE
  8. MULTIVITAMIN [Concomitant]
     Active Substance: VITAMINS
  9. HYDROCODONE BITARTRATE AND ACETAMINOPHEN [Concomitant]
     Active Substance: ACETAMINOPHEN\HYDROCODONE BITARTRATE
  10. RUXOLITINIB [Suspect]
     Active Substance: RUXOLITINIB
     Indication: CHRONIC LEUKAEMIA
     Route: 048
     Dates: start: 20160113, end: 20160130
  11. AMLODOPINE BESYLATE [Concomitant]
  12. GABAPENTIN. [Concomitant]
     Active Substance: GABAPENTIN
  13. CITALOPRAM [Concomitant]
     Active Substance: CITALOPRAM HYDROBROMIDE
  14. IRON [Concomitant]
     Active Substance: IRON

REACTIONS (5)
  - Asthenia [None]
  - Dyspnoea [None]
  - Fatigue [None]
  - Oesophagitis [None]
  - Gastric ulcer haemorrhage [None]

NARRATIVE: CASE EVENT DATE: 20160201
